FAERS Safety Report 5857640-2 (Version None)
Quarter: 2008Q3

REPORT INFORMATION
  Report Type: 
  Country: None (occurrence: None)
  Receive Date: 20080826
  Receipt Date: 20080229
  Transmission Date: 20090109
  Serious: Yes (Other)
  Sender: FDA-Public Use
  Company Number: PHHY2008BR18962

PATIENT
  Age: 66 Year
  Sex: Female

DRUGS (3)
  1. LOTENSIN H [Suspect]
  2. LOSARTAN POTASSIUM [Suspect]
     Dosage: 100 MG, UNK
  3. LOSARTAN POTASSIUM [Suspect]
     Dosage: 50 MG, UNK

REACTIONS (2)
  - OEDEMA PERIPHERAL [None]
  - URINARY RETENTION [None]
